FAERS Safety Report 8767042 (Version 3)
Quarter: 2012Q4

REPORT INFORMATION
  Report Type: 
  Country: US (occurrence: US)
  Receive Date: 20120904
  Receipt Date: 20120925
  Transmission Date: 20130627
  Serious: Yes (Other)
  Sender: FDA-Public Use
  Company Number: US-PFIZER INC-2012213218

PATIENT
  Age: 80 Year
  Sex: Female
  Weight: 52.15 kg

DRUGS (6)
  1. XALATAN [Suspect]
     Indication: GLAUCOMA
     Dosage: 1 Gtt, 1x/day
     Route: 047
     Dates: end: 2012
  2. AZOPT [Suspect]
     Indication: GLAUCOMA
     Dosage: 1 Gtt, 2x/day
     Route: 047
     Dates: end: 2012
  3. BETOPTIC-S [Suspect]
     Indication: GLAUCOMA
     Dosage: 1 Gtt, 2x/day
     Route: 047
     Dates: end: 2012
  4. CELEBREX [Concomitant]
     Indication: ARTHRITIS
     Dosage: 200 mg, 1x/day
  5. LOSARTAN [Concomitant]
     Indication: HYPERTENSION
     Dosage: 100 mg, 1x/day
  6. PRAVACHOL [Concomitant]
     Indication: BLOOD CHOLESTEROL ABNORMAL
     Dosage: 20 mg, 1x/day

REACTIONS (2)
  - Intraocular pressure increased [Unknown]
  - Drug ineffective [Unknown]
